FAERS Safety Report 4373745-X (Version None)
Quarter: 2004Q2

REPORT INFORMATION
  Report Type: 
  Country: None (occurrence: None)
  Receive Date: 20040603
  Receipt Date: 20040528
  Transmission Date: 20050107
  Serious: Yes (Hospitalization)
  Sender: FDA-Public Use
  Company Number: 2004-DE-02980GD (0)

PATIENT
  Age: 34 Year
  Sex: Female

DRUGS (1)
  1. MIRTAZAPINE [Suspect]
     Dosage: 1.68 G ( 30 MG), PO
     Route: 048

REACTIONS (4)
  - DRUG INEFFECTIVE [None]
  - MIOSIS [None]
  - OVERDOSE [None]
  - SOMNOLENCE [None]
